FAERS Safety Report 9711661 (Version 2)
Quarter: 2014Q2

REPORT INFORMATION
  Report Type: Spontaneous
  Country: US (occurrence: US)
  Receive Date: 20131126
  Receipt Date: 20140510
  Transmission Date: 20141212
  Serious: No
  Sender: FDA-Public Use
  Company Number: US-BRISTOL-MYERS SQUIBB COMPANY-19085323

PATIENT
  Age: 52 Year
  Sex: Male
  Weight: 92.97 kg

DRUGS (2)
  1. BYDUREON [Suspect]
     Indication: TYPE 2 DIABETES MELLITUS
     Route: 058
  2. METFORMIN HCL [Suspect]
     Route: 048

REACTIONS (3)
  - Drug ineffective [Unknown]
  - Urine output increased [Unknown]
  - Injection site pruritus [Not Recovered/Not Resolved]
